FAERS Safety Report 9336635 (Version 1)
Quarter: 2013Q2

REPORT INFORMATION
  Report Type: Spontaneous
  Country: FR (occurrence: FR)
  Receive Date: 20130607
  Receipt Date: 20130607
  Transmission Date: 20140414
  Serious: Yes (Hospitalization)
  Sender: FDA-Public Use
  Company Number: PHHY2013FR057512

PATIENT
  Age: 73 Year
  Sex: Female

DRUGS (3)
  1. LEPONEX [Suspect]
     Dosage: UNK
     Route: 048
     Dates: start: 201212, end: 20130130
  2. MODOPAR [Concomitant]
     Dosage: UNK
  3. TRIVASTAL [Concomitant]

REACTIONS (2)
  - Acquired haemophilia [Recovering/Resolving]
  - Anti factor VIII antibody test [Recovering/Resolving]
